FAERS Safety Report 14272230 (Version 1)
Quarter: 2017Q4

REPORT INFORMATION
  Report Type: Spontaneous
  Country: KR (occurrence: KR)
  Receive Date: 20171212
  Receipt Date: 20171212
  Transmission Date: 20180321
  Serious: Yes (Other)
  Sender: FDA-Public Use
  Company Number: KR-ASTRAZENECA-2017SF25084

PATIENT
  Sex: Male

DRUGS (1)
  1. IRESSA [Suspect]
     Active Substance: GEFITINIB
     Route: 048

REACTIONS (5)
  - Mobility decreased [Recovered/Resolved]
  - Recurrent cancer [Unknown]
  - Weight decreased [Unknown]
  - Pruritus [Unknown]
  - Metastases to central nervous system [Unknown]
